FAERS Safety Report 14815618 (Version 1)
Quarter: 2018Q2

REPORT INFORMATION
  Report Type: Spontaneous
  Country: US (occurrence: US)
  Receive Date: 20180426
  Receipt Date: 20180426
  Transmission Date: 20180711
  Serious: No
  Sender: FDA-Public Use
  Company Number: US-009507513-1804USA009072

PATIENT
  Age: 34 Year
  Sex: Female
  Weight: 61.22 kg

DRUGS (1)
  1. NEXPLANON [Suspect]
     Active Substance: ETONOGESTREL
     Dosage: 1 DF, UNK
     Route: 059
     Dates: start: 20180212

REACTIONS (3)
  - Complication associated with device [Unknown]
  - Device deployment issue [Unknown]
  - No adverse event [Unknown]

NARRATIVE: CASE EVENT DATE: 20180323
